FAERS Safety Report 13092769 (Version 1)
Quarter: 2017Q1

REPORT INFORMATION
  Report Type: Spontaneous
  Country: US (occurrence: US)
  Receive Date: 20170106
  Receipt Date: 20170106
  Transmission Date: 20170428
  Serious: No
  Sender: FDA-Public Use
  Company Number: US-JNJFOC-20161210312

PATIENT
  Age: 1 Year
  Sex: Female
  Weight: 10.43 kg

DRUGS (1)
  1. INFANTS TYLENOL [Suspect]
     Active Substance: ACETAMINOPHEN
     Indication: TEETHING
     Route: 048
     Dates: start: 20161208, end: 20161208

REACTIONS (3)
  - Rash [Not Recovered/Not Resolved]
  - Drug administration error [Unknown]
  - Weight decreased [None]

NARRATIVE: CASE EVENT DATE: 20161208
